FAERS Safety Report 25945562 (Version 1)
Quarter: 2025Q4

REPORT INFORMATION
  Report Type: Spontaneous
  Country: CA (occurrence: CA)
  Receive Date: 20251021
  Receipt Date: 20251021
  Transmission Date: 20260119
  Serious: Yes (Other)
  Sender: PFIZER
  Company Number: CA-PFIZER INC-202500207409

PATIENT
  Age: 79 Year
  Sex: Female

DRUGS (1)
  1. SUTENT [Suspect]
     Active Substance: SUNITINIB MALATE
     Indication: Papillary thyroid cancer
     Dosage: 25 MG, CYCLIC (25 MG DAILY, DOSE ESCALATE TO 37.5-50 MG, 4/2 WEEK SCHEDULE)
     Dates: start: 202502

REACTIONS (2)
  - Cytopenia [Recovering/Resolving]
  - Off label use [Unknown]
